FAERS Safety Report 11196790 (Version 1)
Quarter: 2015Q2

REPORT INFORMATION
  Report Type: Spontaneous
  Country: JP (occurrence: JP)
  Receive Date: 20150617
  Receipt Date: 20150617
  Transmission Date: 20150821
  Serious: Yes (Hospitalization)
  Sender: FDA-Public Use
  Company Number: JP-AMGEN-JPNSP2015059259

PATIENT
  Age: 75 Year
  Sex: Female

DRUGS (3)
  1. CYCLOPHOSPHAMIDE MONOHYDRATE [Suspect]
     Active Substance: CYCLOPHOSPHAMIDE
     Indication: BREAST CANCER
     Dosage: UNK
     Route: 041
     Dates: start: 20150515
  2. G-LASTA [Suspect]
     Active Substance: PEGFILGRASTIM
     Indication: COLONY STIMULATING FACTOR PROPHYLAXIS
     Dosage: 3.6 MG, UNK
     Route: 058
     Dates: start: 20150516
  3. DOCETAXEL. [Suspect]
     Active Substance: DOCETAXEL
     Indication: BREAST CANCER
     Dosage: UNK
     Route: 041
     Dates: start: 20150515

REACTIONS (1)
  - Febrile neutropenia [Recovered/Resolved]

NARRATIVE: CASE EVENT DATE: 20150522
